FAERS Safety Report 6460947-1 (Version None)
Quarter: 2009Q4

REPORT INFORMATION
  Report Type: 
  Country: None (occurrence: None)
  Receive Date: 20091130
  Receipt Date: 20091120
  Transmission Date: 20100525
  Serious: No
  Sender: FDA-Public Use
  Company Number: B0607063A

PATIENT
  Age: 30 Year
  Sex: Female
  Weight: 121 kg

DRUGS (2)
  1. ALLI [Suspect]
     Dosage: 2CAP PER DAY
     Route: 065
     Dates: start: 20091114
  2. L THYROXIN [Concomitant]
     Route: 065

REACTIONS (3)
  - ABDOMINAL PAIN [None]
  - DIARRHOEA [None]
  - HAEMATOCHEZIA [None]
